FAERS Safety Report 24142925 (Version 2)
Quarter: 2024Q3

REPORT INFORMATION
  Report Type: Report from Study
  Country: US (occurrence: US)
  Receive Date: 20240726
  Receipt Date: 20240906
  Transmission Date: 20241017
  Serious: Yes (Other)
  Sender: BAYER
  Company Number: US-BAYER-2024A098252

PATIENT
  Age: 76 Year
  Sex: Female

DRUGS (1)
  1. STIVARGA [Suspect]
     Active Substance: REGORAFENIB MONOHYDRATE
     Indication: Cholangiocarcinoma
     Dosage: 80 MG, QD
     Route: 048
     Dates: start: 20240630

REACTIONS (12)
  - Hypertension [Recovering/Resolving]
  - Nocturia [Unknown]
  - Flatulence [Unknown]
  - Dizziness [Recovered/Resolved]
  - Skin fissures [Unknown]
  - Insomnia [Unknown]
  - Therapeutic response unexpected [None]
  - Fatigue [Unknown]
  - Diarrhoea [Not Recovered/Not Resolved]
  - Off label use [None]
  - Blister [Not Recovered/Not Resolved]
  - Product packaging quantity issue [Unknown]

NARRATIVE: CASE EVENT DATE: 20240630
